FAERS Safety Report 11500111 (Version 2)
Quarter: 2015Q3

REPORT INFORMATION
  Report Type: Spontaneous
  Country: US (occurrence: US)
  Receive Date: 20150914
  Receipt Date: 20150914
  Transmission Date: 20151125
  Serious: Yes (Other)
  Sender: FDA-Public Use
  Company Number: US-B.I. PHARMACEUTICALS,INC./RIDGEFIELD-2015-BI-48753BP

PATIENT
  Age: 67 Year
  Sex: Male
  Weight: 97 kg

DRUGS (12)
  1. CORAL CALCIUM [Concomitant]
     Indication: SUPPLEMENTATION THERAPY
     Dosage: 420 MG
     Route: 048
  2. UBIQUINOL [Concomitant]
     Active Substance: UBIQUINOL
     Indication: SUPPLEMENTATION THERAPY
     Dosage: 100 MG
     Route: 048
  3. LOSARTAN. [Concomitant]
     Active Substance: LOSARTAN
     Indication: HYPERTENSION
     Dosage: 100 MG
     Route: 048
     Dates: start: 2005
  4. VITAMIN D [Concomitant]
     Active Substance: CHOLECALCIFEROL
     Indication: SUPPLEMENTATION THERAPY
     Dosage: 5000 U
     Route: 048
  5. COMBIVENT [Suspect]
     Active Substance: ALBUTEROL SULFATE\IPRATROPIUM BROMIDE
     Indication: EMPHYSEMA
     Dosage: DOSE PER APPLICATION: 20 MCG / 100 MCG; DAILY DOSE: 80 MCG/400 MCG
     Route: 055
     Dates: start: 201110
  6. MAGNESIUM [Concomitant]
     Active Substance: MAGNESIUM
     Indication: SUPPLEMENTATION THERAPY
     Dosage: 420 MG
     Route: 048
  7. RED YEAST RICE [Concomitant]
     Active Substance: DIETARY SUPPLEMENT
     Indication: BLOOD CHOLESTEROL INCREASED
     Dosage: 1200 MG
     Route: 048
  8. COLON CARE [Concomitant]
     Indication: BOWEL MOVEMENT IRREGULARITY
     Dosage: FORMULATION: CAPLET
     Route: 048
  9. IPRATROPIUM / ALBUTEROL [Concomitant]
     Indication: EMPHYSEMA
     Route: 055
     Dates: start: 2009
  10. CENTRUM SILVER +50 MENS [Concomitant]
     Indication: SUPPLEMENTATION THERAPY
     Route: 048
  11. COENZYME Q10 [Concomitant]
     Active Substance: UBIDECARENONE
     Indication: SUPPLEMENTATION THERAPY
     Route: 065
  12. VERAPAMIL [Concomitant]
     Active Substance: VERAPAMIL HYDROCHLORIDE
     Indication: HYPERTENSION
     Dosage: 240 MG
     Route: 048
     Dates: start: 2005

REACTIONS (2)
  - Deafness [Unknown]
  - Peripheral arterial occlusive disease [Unknown]

NARRATIVE: CASE EVENT DATE: 201110
